FAERS Safety Report 15715460 (Version 1)
Quarter: 2018Q4

REPORT INFORMATION
  Report Type: Spontaneous
  Country: US (occurrence: US)
  Receive Date: 20181212
  Receipt Date: 20181212
  Transmission Date: 20190205
  Serious: No
  Sender: FDA-Public Use
  Company Number: US-BAUSCH-BL-2018-033700

PATIENT
  Sex: Female

DRUGS (2)
  1. APRISO [Suspect]
     Active Substance: MESALAMINE
     Route: 048
     Dates: start: 201809
  2. APRISO [Suspect]
     Active Substance: MESALAMINE
     Indication: COLITIS ULCERATIVE
     Route: 048
     Dates: end: 201809

REACTIONS (3)
  - Intentional product use issue [Not Recovered/Not Resolved]
  - Frequent bowel movements [Not Recovered/Not Resolved]
  - Inability to afford medication [Not Recovered/Not Resolved]

NARRATIVE: CASE EVENT DATE: 201809
